FAERS Safety Report 8357068-X (Version None)
Quarter: 2012Q2

REPORT INFORMATION
  Report Type: 
  Country: None (occurrence: None)
  Receive Date: 20120514
  Receipt Date: 20120509
  Transmission Date: 20120825
  Serious: Yes (Other)
  Sender: FDA-Public Use
  Company Number: NL-BAYER-2012-046032

PATIENT

DRUGS (1)
  1. NEXAVAR [Suspect]
     Dosage: UNK

REACTIONS (2)
  - OEDEMA [None]
  - TOXICITY TO VARIOUS AGENTS [None]
